FAERS Safety Report 24005730 (Version 1)
Quarter: 2024Q2

REPORT INFORMATION
  Report Type: Spontaneous
  Country: US (occurrence: None)
  Receive Date: 20240623
  Receipt Date: 20240623
  Transmission Date: 20240715
  Serious: Yes (Hospitalization, Other)
  Sender: FDA-Public Use
  Company Number: None

PATIENT
  Age: 42 Year
  Sex: Female
  Weight: 54 kg

DRUGS (2)
  1. MONTELUKAST [Suspect]
     Active Substance: MONTELUKAST SODIUM
     Indication: Inflammation
     Dates: start: 20240606
  2. DULOXETINE [Concomitant]
     Active Substance: DULOXETINE

REACTIONS (8)
  - Amnesia [None]
  - Dissociation [None]
  - Belligerence [None]
  - Aggression [None]
  - Delusion [None]
  - Intentional self-injury [None]
  - Anaemia [None]
  - Cellulitis [None]

NARRATIVE: CASE EVENT DATE: 20240606
